FAERS Safety Report 7915113-7 (Version None)
Quarter: 2011Q4

REPORT INFORMATION
  Report Type: 
  Country: None (occurrence: None)
  Receive Date: 20111115
  Receipt Date: 20111107
  Transmission Date: 20120403
  Serious: Yes (Life-Threatening, Other)
  Sender: FDA-Public Use
  Company Number: JP-GENZYME-THYM-1002885

PATIENT
  Age: 82 Year
  Sex: Female
  Weight: 82 kg

DRUGS (1)
  1. THYMOGLOBULIN [Suspect]
     Indication: APLASTIC ANAEMIA
     Dosage: 200 MG, QD
     Route: 042
     Dates: start: 20111017, end: 20111021

REACTIONS (2)
  - RESPIRATORY FAILURE [None]
  - INFECTION [None]
